FAERS Safety Report 10498291 (Version 1)
Quarter: 2014Q4

REPORT INFORMATION
  Report Type: Spontaneous
  Country: US (occurrence: US)
  Receive Date: 20141006
  Receipt Date: 20141006
  Transmission Date: 20150528
  Serious: No
  Sender: FDA-Public Use
  Company Number: US-009507513-1410USA001824

PATIENT
  Sex: Female

DRUGS (2)
  1. DR. SCHOLL^S INGROWN TOENAIL PAIN RELIEVER [Suspect]
     Active Substance: SODIUM SULFIDE
     Indication: ONYCHALGIA
  2. DR. SCHOLL^S INGROWN TOENAIL PAIN RELIEVER [Suspect]
     Active Substance: SODIUM SULFIDE
     Indication: INGROWING NAIL
     Dosage: UNK, UNKNOWN
     Route: 061

REACTIONS (2)
  - Product quality issue [Unknown]
  - Drug ineffective [Unknown]
